FAERS Safety Report 8209992-6 (Version None)
Quarter: 2012Q1

REPORT INFORMATION
  Report Type: 
  Country: None (occurrence: None)
  Receive Date: 20120314
  Receipt Date: 20110825
  Transmission Date: 20120608
  Serious: No
  Sender: FDA-Public Use
  Company Number: US-ASTRAZENECA-2011SE51181

PATIENT
  Age: 65 Year
  Sex: Female

DRUGS (7)
  1. BROMOCRIPTINE MESYLATE [Concomitant]
  2. TOPROL-XL [Suspect]
     Route: 048
  3. SPIRIVA [Suspect]
     Route: 065
  4. ALBUTEROL [Concomitant]
  5. BETA BLOCKING AGENTS [Concomitant]
  6. LANTUS [Suspect]
     Indication: TYPE 2 DIABETES MELLITUS
     Route: 058
     Dates: start: 20110805
  7. XANAX [Concomitant]

REACTIONS (6)
  - FEELING HOT [None]
  - JOINT INJURY [None]
  - INFLUENZA LIKE ILLNESS [None]
  - BLOOD GLUCOSE INCREASED [None]
  - TREMOR [None]
  - PYREXIA [None]
